FAERS Safety Report 26038240 (Version 1)
Quarter: 2025Q4

REPORT INFORMATION
  Report Type: Spontaneous
  Country: US (occurrence: US)
  Receive Date: 20251113
  Receipt Date: 20251113
  Transmission Date: 20260118
  Serious: No
  Sender: DECIPHERA PHARMACEUTICALS
  Company Number: US-DECIPHERA PHARMACEUTICALS LLC-2025US001373

PATIENT
  Sex: Male

DRUGS (1)
  1. ROMVIMZA [Suspect]
     Active Substance: VIMSELTINIB
     Indication: Product used for unknown indication
     Dosage: 30 MILLIGRAM, TWICE WEEKLY

REACTIONS (3)
  - Hypertension [Recovered/Resolved]
  - Periorbital oedema [Unknown]
  - Face oedema [Unknown]
